FAERS Safety Report 8608456 (Version 3)
Quarter: 2016Q3

REPORT INFORMATION
  Report Type: Report from Study
  Country: US (occurrence: US)
  Receive Date: 20120611
  Receipt Date: 20160814
  Transmission Date: 20161109
  Serious: Yes (Other)
  Sender: FDA-Public Use
  Company Number: US-ROCHE-1076550

PATIENT
  Sex: Male

DRUGS (7)
  1. LEVOMET [Concomitant]
  2. LUCENTIS [Suspect]
     Active Substance: RANIBIZUMAB
     Indication: DIABETIC RETINAL OEDEMA
     Route: 050
     Dates: start: 20120825, end: 20121127
  3. ATORVASTATIN [Concomitant]
     Active Substance: ATORVASTATIN
  4. SIMVASTATIN. [Concomitant]
     Active Substance: SIMVASTATIN
  5. ENALAPRIL [Concomitant]
     Active Substance: ENALAPRIL
  6. ASA [Concomitant]
     Active Substance: ASPIRIN
  7. FAMOTIDINE. [Concomitant]
     Active Substance: FAMOTIDINE

REACTIONS (3)
  - Cardiac failure congestive [Unknown]
  - Myocardial infarction [Unknown]
  - Localised infection [Unknown]
